FAERS Safety Report 6861993-6 (Version None)
Quarter: 2010Q3

REPORT INFORMATION
  Report Type: 
  Country: None (occurrence: None)
  Receive Date: 20100721
  Receipt Date: 20100716
  Transmission Date: 20110219
  Serious: Yes (Death, Hospitalization)
  Sender: FDA-Public Use
  Company Number: PHHY2010GH47158

PATIENT
  Sex: Male
  Weight: 74 kg

DRUGS (2)
  1. GLEEVEC [Suspect]
     Indication: GASTROINTESTINAL STROMAL TUMOUR
     Dosage: 400 MG DAILY
     Route: 048
     Dates: start: 20100707
  2. M.V.I. [Concomitant]
     Dosage: 1 TDS
     Dates: start: 20100705, end: 20100710

REACTIONS (3)
  - ASTHENIA [None]
  - CHROMATURIA [None]
  - DEATH [None]
